FAERS Safety Report 6642548-5 (Version None)
Quarter: 2010Q1

REPORT INFORMATION
  Report Type: 
  Country: None (occurrence: None)
  Receive Date: 20100319
  Receipt Date: 20100301
  Transmission Date: 20100710
  Serious: No
  Sender: FDA-Public Use
  Company Number: B0616151A

PATIENT

DRUGS (1)
  1. RELENZA [Suspect]
     Indication: INFLUENZA
     Dosage: 20MG PER DAY
     Route: 055
     Dates: start: 20091201

REACTIONS (2)
  - NO ADVERSE EVENT [None]
  - OVERDOSE [None]
